FAERS Safety Report 11623026 (Version 1)
Quarter: 2015Q4

REPORT INFORMATION
  Report Type: Spontaneous
  Country: US (occurrence: US)
  Receive Date: 20151013
  Receipt Date: 20151013
  Transmission Date: 20160304
  Serious: No
  Sender: FDA-Public Use
  Company Number: US-JNJFOC-20150101888

PATIENT
  Sex: Female

DRUGS (4)
  1. TYLENOL COLD AND FLU SEVERE WARM HONEY LEMON [Concomitant]
     Indication: COUGH
     Dosage: 1 TABLESPOON, 1 PER NIGHT AND IF  THE PATIENT WAKE COUGHING SHE^LL TAKE THE SECOND.
     Route: 048
  2. BLOOD PRESSURE MEDICATION NOS [Concomitant]
     Active Substance: UNSPECIFIED INGREDIENT
     Indication: HYPERTENSION
     Route: 065
  3. TYLENOL EXTRA STRENGTH [Suspect]
     Active Substance: ACETAMINOPHEN
     Indication: PAIN
     Dosage: 1 CAPLET WHEN NEEDED
     Route: 048
  4. TYLENOL COLD AND FLU SEVERE WARM HONEY LEMON [Concomitant]
     Indication: NASOPHARYNGITIS
     Dosage: 1 TABLESPOON, 1 PER NIGHT AND IF  THE PATIENT WAKE COUGHING SHE^LL TAKE THE SECOND.
     Route: 048

REACTIONS (1)
  - Drug administration error [Unknown]
